FAERS Safety Report 10329786 (Version 1)
Quarter: 2014Q3

REPORT INFORMATION
  Report Type: Spontaneous
  Country: FR (occurrence: FR)
  Receive Date: 20140721
  Receipt Date: 20140721
  Transmission Date: 20150326
  Serious: Yes (Other)
  Sender: FDA-Public Use
  Company Number: PHHY2014FR085020

PATIENT
  Sex: Female

DRUGS (2)
  1. EXJADE [Suspect]
     Active Substance: DEFERASIROX
     Indication: HAEMOCHROMATOSIS
     Dosage: 500 MG, DAILY
  2. EXJADE [Suspect]
     Active Substance: DEFERASIROX
     Indication: OFF LABEL USE

REACTIONS (2)
  - Pneumomediastinum [Recovered/Resolved]
  - Dyspnoea [Recovered/Resolved]
